FAERS Safety Report 5669335-9 (Version None)
Quarter: 2008Q1

REPORT INFORMATION
  Report Type: 
  Country: None (occurrence: None)
  Receive Date: 20080317
  Receipt Date: 20080310
  Transmission Date: 20080703
  Serious: Yes (Death, Hospitalization)
  Sender: FDA-Public Use
  Company Number: PHHY2008JP01013

PATIENT
  Age: 57 Year
  Sex: Female

DRUGS (3)
  1. BLOPRESS [Concomitant]
     Dates: end: 20080111
  2. ENALAPRIL MALEATE [Concomitant]
     Dates: end: 20080111
  3. FLUVASTATIN [Suspect]
     Indication: HYPERCHOLESTEROLAEMIA
     Dosage: 30 MG/DAY
     Route: 048
     Dates: start: 20071201, end: 20080111

REACTIONS (4)
  - ALANINE AMINOTRANSFERASE INCREASED [None]
  - ASPARTATE AMINOTRANSFERASE INCREASED [None]
  - AUTOIMMUNE HEPATITIS [None]
  - BLOOD BILIRUBIN INCREASED [None]
